FAERS Safety Report 9251761 (Version 1)
Quarter: 2013Q1

REPORT INFORMATION
  Report Type: Spontaneous
  Country: US (occurrence: None)
  Receive Date: 20130305
  Receipt Date: 20130305
  Transmission Date: 20140127
  Serious: Yes (Other)
  Sender: FDA-Public Use
  Company Number: 163-21880-12081739

PATIENT
  Sex: Female
  Weight: 56.7 kg

DRUGS (6)
  1. REVLIMID (LENALIDOMIDE) (CAPSULES) [Suspect]
     Indication: PLASMA CELL MYELOMA
     Dosage: 01/24/2009 - ONGOING, CAPSULE, 25 MG, 21 IN 28 D, PO
  2. ADVIL (IBUPROFEN) [Concomitant]
  3. CALCIUM (CALCIUM) [Concomitant]
  4. CRANBERRY (OTHER THERAPEUTIC PRODUCTS) [Concomitant]
  5. DEXAMETHASONE (DEXAMETHASONE) [Concomitant]
  6. METAMUCIL (METAMUCIL ^PROCTER + GAMBLE^) [Concomitant]

REACTIONS (1)
  - Hypokalaemia [None]
